FAERS Safety Report 9501864 (Version 2)
Quarter: 2013Q3

REPORT INFORMATION
  Report Type: Report from Study
  Country: DE (occurrence: DE)
  Receive Date: 20130905
  Receipt Date: 20130905
  Transmission Date: 20140515
  Serious: Yes (Hospitalization)
  Sender: FDA-Public Use
  Company Number: DE-TEVA-393051GER

PATIENT
  Sex: Male

DRUGS (19)
  1. DOXORUBICIN [Suspect]
     Indication: B-CELL LYMPHOMA
     Dosage: ONCE IN TWO WEEK FOR ONE DAY
     Route: 042
     Dates: start: 20130301, end: 20130301
  2. VINCRISTINE [Suspect]
     Indication: B-CELL LYMPHOMA
     Dosage: ONCE IN TWO WEEK FOR ONE DAY
     Route: 042
     Dates: start: 20130301, end: 20130301
  3. PREDNISOLONE [Suspect]
     Indication: B-CELL LYMPHOMA
     Dosage: 100 MILLIGRAM DAILY;
     Route: 048
     Dates: start: 20130301, end: 20130305
  4. PREDNISOLONE [Suspect]
     Dosage: 50 MILLIGRAM DAILY;
  5. PREDNISOLONE [Suspect]
     Dosage: 25 MILLIGRAM DAILY;
  6. PREDNISOLONE [Suspect]
     Dosage: 12.5 MILLIGRAM DAILY;
     Dates: end: 20130214
  7. RITUXIMAB [Suspect]
     Indication: B-CELL LYMPHOMA
     Dosage: ONCE IN TWO WEEKS FOR ONE DAY
     Route: 042
     Dates: start: 20130225, end: 20130225
  8. CYCLOPHOSPHAMIDE [Suspect]
     Indication: B-CELL LYMPHOMA
     Dosage: ONCE IN TWO WEEK FOR ONE DAY
     Route: 042
     Dates: start: 20130301, end: 20130301
  9. ACETYLSALICYLIC ACID [Concomitant]
     Indication: CEREBRAL ISCHAEMIA
     Route: 048
  10. AMLODIPIN [Concomitant]
     Indication: HYPERTENSION
     Route: 048
  11. CANDESARTAN CILEXETIL [Concomitant]
     Indication: HYPERTENSION
     Dosage: 8 MILLIGRAM DAILY;
     Route: 048
  12. XIPAMIDE [Concomitant]
     Indication: HYPERTENSION
     Dosage: 10 MILLIGRAM DAILY;
     Route: 048
  13. RANITIDIN [Concomitant]
     Indication: PROPHYLAXIS
     Route: 048
  14. CLEMASTIN [Concomitant]
     Indication: PROPHYLAXIS
     Dosage: 2 MILLIGRAM DAILY;
     Route: 048
  15. FINASTERID [Concomitant]
     Indication: PROPHYLAXIS
     Dosage: 1 MILLIGRAM DAILY;
     Route: 048
  16. MESNA [Concomitant]
     Indication: PROPHYLAXIS
     Dosage: 900 MILLIGRAM DAILY;
     Route: 042
     Dates: start: 20130215, end: 20130215
  17. ONDANSETRON [Concomitant]
     Indication: PROPHYLAXIS
     Dosage: 8 MILLIGRAM DAILY;
     Route: 042
     Dates: start: 20130215, end: 20130215
  18. NATRIUM-BICARBONAT [Concomitant]
     Dosage: 4 GRAM DAILY;
     Route: 048
  19. PROBENECID [Concomitant]

REACTIONS (1)
  - Mucosal inflammation [Recovered/Resolved]
